FAERS Safety Report 15948232 (Version 2)
Quarter: 2019Q2

REPORT INFORMATION
  Report Type: Spontaneous
  Country: US (occurrence: US)
  Receive Date: 20190211
  Receipt Date: 20190402
  Transmission Date: 20190711
  Serious: No
  Sender: FDA-Public Use
  Company Number: US-SA-2019SA038309

PATIENT
  Age: 72 Year
  Sex: Female

DRUGS (3)
  1. VITAMIN A NOS [Concomitant]
     Route: 065
  2. DUPIXENT [Suspect]
     Active Substance: DUPILUMAB
     Indication: DERMATITIS ATOPIC
     Dosage: 300 MG, QOW
     Route: 058
     Dates: start: 20181211
  3. ASPIRIN EC [Concomitant]
     Active Substance: ASPIRIN
     Route: 065

REACTIONS (4)
  - Diarrhoea [Unknown]
  - Fungal skin infection [Unknown]
  - Nasopharyngitis [Unknown]
  - Diarrhoea [Not Recovered/Not Resolved]

NARRATIVE: CASE EVENT DATE: 201902
